FAERS Safety Report 8905392 (Version 1)
Quarter: 2012Q4

REPORT INFORMATION
  Report Type: 
  Country: BE (occurrence: BE)
  Receive Date: 20121113
  Receipt Date: 20121113
  Transmission Date: 20130627
  Serious: Yes (Death, Life-Threatening, Hospitalization, Other)
  Sender: FDA-Public Use
  Company Number: BE-ELI_LILLY_AND_COMPANY-BE201210008152

PATIENT
  Sex: Male
  Weight: 100 kg

DRUGS (4)
  1. EFIENT [Suspect]
     Indication: ACUTE MYOCARDIAL INFARCTION
     Dosage: UNK
     Dates: start: 20120911, end: 20121015
  2. HEPARIN LMW [Concomitant]
  3. LEVOPHED [Concomitant]
  4. TAZOCIN [Concomitant]

REACTIONS (5)
  - Multi-organ failure [Fatal]
  - Bronchopneumonia [Fatal]
  - Aspiration [Fatal]
  - Septic shock [Unknown]
  - Rectal haemorrhage [Recovered/Resolved]
